FAERS Safety Report 8078810-1 (Version None)
Quarter: 2012Q1

REPORT INFORMATION
  Report Type: 
  Country: None (occurrence: None)
  Receive Date: 20120124
  Receipt Date: 20120111
  Transmission Date: 20120608
  Serious: Yes (Hospitalization)
  Sender: FDA-Public Use
  Company Number: 2012SP001951

PATIENT
  Age: 41 Year
  Sex: Female

DRUGS (7)
  1. IBUPROFEN (ADVIL) [Suspect]
     Indication: PYREXIA
     Dosage: 400 MG;BID;PO
     Route: 048
     Dates: start: 20110706, end: 20110710
  2. EBASTINE [Suspect]
     Indication: PRODUCT USED FOR UNKNOWN INDICATION
     Dosage: ;PO
     Route: 048
     Dates: start: 20110624, end: 20110701
  3. AMOXICILLIN [Suspect]
     Indication: INFECTION
     Dosage: 2 GM;QD;PO
     Route: 048
     Dates: start: 20110709, end: 20110712
  4. NOVOPHANE (DIETARY SUPPLEMENT WITH AMINE ACIDS) (GENERAL NUTRIENTS) [Suspect]
     Indication: PRODUCT USED FOR UNKNOWN INDICATION
     Dosage: ;PO
     Route: 048
     Dates: start: 20110601, end: 20110706
  5. ACETAMINOPHEN [Suspect]
     Indication: PRODUCT USED FOR UNKNOWN INDICATION
     Dates: start: 20110701
  6. DAFLON (CAPIVEN) [Suspect]
     Indication: PRODUCT USED FOR UNKNOWN INDICATION
     Dosage: 500 MG;QID;PO
     Route: 048
     Dates: start: 20110701
  7. CELESTAMINE TAB [Suspect]
     Indication: PRODUCT USED FOR UNKNOWN INDICATION
     Dosage: ;PO
     Route: 048
     Dates: start: 20110624, end: 20110701

REACTIONS (10)
  - DRUG RASH WITH EOSINOPHILIA AND SYSTEMIC SYMPTOMS [None]
  - PLEURAL EFFUSION [None]
  - HAEMOGLOBIN DECREASED [None]
  - VIRAL INFECTION [None]
  - PERICARDITIS [None]
  - COUGH [None]
  - ARTHRALGIA [None]
  - MYALGIA [None]
  - PYREXIA [None]
  - EOSINOPHILIA [None]
